FAERS Safety Report 23343787 (Version 2)
Quarter: 2024Q1

REPORT INFORMATION
  Report Type: Spontaneous
  Country: US (occurrence: US)
  Receive Date: 20231227
  Receipt Date: 20240223
  Transmission Date: 20240410
  Serious: No
  Sender: FDA-Public Use
  Company Number: US-PFIZER INC-202300447376

PATIENT
  Age: 11 Year
  Sex: Female

DRUGS (1)
  1. GENOTROPIN [Suspect]
     Active Substance: SOMATROPIN
     Indication: Blood growth hormone
     Dosage: 1.4 MG, 6 DAYS A WEEK/6-DAYS-PER-WEEK REGIMEN

REACTIONS (3)
  - Product dose omission issue [Unknown]
  - Fear of injection [Recovering/Resolving]
  - Anti-thyroid antibody [Unknown]
